FAERS Safety Report 7888289 (Version 2)
Quarter: 2013Q2

REPORT INFORMATION
  Report Type: Report from Study
  Country: US (occurrence: US)
  Receive Date: 20110406
  Receipt Date: 20130606
  Transmission Date: 20140414
  Serious: Yes (Hospitalization)
  Sender: FDA-Public Use
  Company Number: US-RB-024937-11

PATIENT
  Age: 49 Year
  Sex: Male

DRUGS (3)
  1. SUBOXONE TABLET [Suspect]
     Indication: PRODUCT USED FOR UNKNOWN INDICATION
     Dosage: DOSAGE INFORMATION UNKNOWN
     Route: 065
  2. ATENOLOL [Concomitant]
     Indication: ATRIAL FIBRILLATION
     Dosage: DOSING DETAILS UNKNOWN
     Route: 065
     Dates: start: 2010
  3. BLOOD THINNER [Concomitant]
     Indication: ATRIAL FIBRILLATION
     Dosage: DOSING DETAILS UNKNOWN
     Route: 065
     Dates: start: 2010

REACTIONS (2)
  - Cardiac disorder [Recovered/Resolved]
  - Atrial fibrillation [Recovered/Resolved]
